APPROVED DRUG PRODUCT: BACLOFEN
Active Ingredient: BACLOFEN
Strength: 20MG
Dosage Form/Route: TABLET;ORAL
Application: A073044 | Product #001
Applicant: TEVA PHARMACEUTICALS USA INC
Approved: Feb 27, 1992 | RLD: No | RS: No | Type: DISCN